FAERS Safety Report 21437040 (Version 4)
Quarter: 2023Q1

REPORT INFORMATION
  Report Type: Spontaneous
  Country: BR (occurrence: BR)
  Receive Date: 20221010
  Receipt Date: 20230123
  Transmission Date: 20230418
  Serious: Yes (Other)
  Sender: FDA-Public Use
  Company Number: BR-NOVARTISPH-NVSC2022BR226849

PATIENT
  Sex: Female
  Weight: 60 kg

DRUGS (1)
  1. DOXYCYCLINE [Suspect]
     Active Substance: DOXYCYCLINE
     Indication: Rhinitis
     Dosage: 1 DOSAGE (EVERY 12 HOURS FOR 10 DAYS, THEN1 TABLET PER DAY)
     Route: 048
     Dates: start: 20220928, end: 20221001

REACTIONS (13)
  - Urinary tract infection [Recovered/Resolved]
  - Renal failure [Recovered/Resolved]
  - Renal pain [Unknown]
  - Dysuria [Recovered/Resolved]
  - Tremor [Recovered/Resolved]
  - Discomfort [Recovered/Resolved]
  - Malaise [Recovered/Resolved]
  - Fatigue [Recovered/Resolved]
  - Headache [Recovered/Resolved]
  - Nausea [Unknown]
  - Insomnia [Unknown]
  - Skin discolouration [Unknown]
  - Physical product label issue [Unknown]

NARRATIVE: CASE EVENT DATE: 20220101
